FAERS Safety Report 8264668-4 (Version None)
Quarter: 2012Q2

REPORT INFORMATION
  Report Type: 
  Country: None (occurrence: None)
  Receive Date: 20120406
  Receipt Date: 20120403
  Transmission Date: 20120825
  Serious: Yes (Disabling)
  Sender: FDA-Public Use
  Company Number: JP-SANOFI-AVENTIS-2010SA071647

PATIENT
  Sex: Male

DRUGS (2)
  1. SPIRONOLACTONE [Concomitant]
  2. FUROSEMIDE [Suspect]
     Indication: LUNG DISORDER
     Route: 065

REACTIONS (1)
  - CIRCULATORY FAILURE NEONATAL [None]
